FAERS Safety Report 5255616-X (Version None)
Quarter: 2007Q1

REPORT INFORMATION
  Report Type: 
  Country: None (occurrence: None)
  Receive Date: 20061201
  Receipt Date: 20060918
  Transmission Date: 20070707
  Serious: No
  Sender: FDA-Public Use
  Company Number: 2006MP001056

PATIENT
  Age: 60 Year
  Sex: Male
  Weight: 74.3899 kg

DRUGS (4)
  1. DACOGEN [Suspect]
     Indication: MYELODYSPLASTIC SYNDROME
     Dosage: QD; IV
     Route: 042
     Dates: start: 20060904, end: 20060908
  2. DACOGEN [Suspect]
     Indication: MYELODYSPLASTIC SYNDROME
     Dosage: QD; IV
     Route: 042
     Dates: start: 20061016
  3. FUROSEMIDE [Concomitant]
  4. ANTI-DIABETICS [Concomitant]

REACTIONS (8)
  - ARTHRALGIA [None]
  - CONSTIPATION [None]
  - FATIGUE [None]
  - OFF LABEL USE [None]
  - PLATELET COUNT DECREASED [None]
  - POLLAKIURIA [None]
  - RED BLOOD CELL COUNT DECREASED [None]
  - WHITE BLOOD CELL COUNT DECREASED [None]
